FAERS Safety Report 7020944-4 (Version None)
Quarter: 2010Q3

REPORT INFORMATION
  Report Type: 
  Country: None (occurrence: None)
  Receive Date: 20100929
  Receipt Date: 20100921
  Transmission Date: 20110219
  Serious: Yes (Other)
  Sender: FDA-Public Use
  Company Number: US-ELI_LILLY_AND_COMPANY-US201009006204

PATIENT
  Age: 77 Year
  Sex: Male

DRUGS (10)
  1. CIALIS [Suspect]
     Dates: start: 20100505
  2. ARICEPT [Concomitant]
  3. SIMVASTATIN [Concomitant]
  4. ZOLOFT [Concomitant]
  5. PRILOSEC [Concomitant]
  6. FISH OIL [Concomitant]
  7. METAMUCIL-2 [Concomitant]
  8. OSCAL 500-D [Concomitant]
  9. ASCORBIC ACID [Concomitant]
  10. VITAMIN E [Concomitant]

REACTIONS (2)
  - CEREBRAL ISCHAEMIA [None]
  - SUBDURAL HAEMATOMA [None]
